FAERS Safety Report 5655055-3 (Version None)
Quarter: 2008Q1

REPORT INFORMATION
  Report Type: 
  Country: None (occurrence: None)
  Receive Date: 20080307
  Receipt Date: 20071206
  Transmission Date: 20080703
  Serious: No
  Sender: FDA-Public Use
  Company Number: A0693020A

PATIENT
  Age: 53 Year
  Sex: Male
  Weight: 110.5 kg

DRUGS (6)
  1. REQUIP [Suspect]
     Indication: DRUG USE FOR UNKNOWN INDICATION
     Dosage: 3MG PER DAY
     Dates: start: 20060601
  2. MOBIC [Concomitant]
     Indication: BACK PAIN
     Route: 048
     Dates: start: 20020101
  3. SKELAXIN [Concomitant]
     Indication: BACK PAIN
     Route: 048
     Dates: start: 20020101
  4. UNSPECIFIED MEDICATION [Concomitant]
     Indication: BACK PAIN
     Route: 048
     Dates: start: 20020101
  5. DARVOCET-N 100 [Concomitant]
     Indication: BACK PAIN
     Route: 048
     Dates: start: 20030101
  6. NORCO [Concomitant]
     Indication: BACK PAIN
     Route: 048
     Dates: start: 20070101

REACTIONS (1)
  - NIGHT SWEATS [None]
